FAERS Safety Report 6376810-0 (Version None)
Quarter: 2009Q3

REPORT INFORMATION
  Report Type: 
  Country: None (occurrence: None)
  Receive Date: 20090925
  Receipt Date: 20090915
  Transmission Date: 20100115
  Serious: Yes (Other)
  Sender: FDA-Public Use
  Company Number: JP-BAYER-200913434BYL

PATIENT
  Age: 57 Year
  Sex: Male

DRUGS (1)
  1. EOB PRIMOVIST INJ. SYRINGE [Suspect]
     Indication: NUCLEAR MAGNETIC RESONANCE IMAGING
     Dosage: TOTAL DAILY DOSE: 10 ML
     Route: 042
     Dates: start: 20090910, end: 20090910

REACTIONS (2)
  - BLOOD PRESSURE DECREASED [None]
  - VOMITING [None]
